FAERS Safety Report 18596163 (Version 1)
Quarter: 2020Q4

REPORT INFORMATION
  Report Type: Spontaneous
  Country: US (occurrence: US)
  Receive Date: 20201209
  Receipt Date: 20201209
  Transmission Date: 20210114
  Serious: Yes (Hospitalization)
  Sender: FDA-Public Use
  Company Number: None

PATIENT
  Sex: Male
  Weight: 86.4 kg

DRUGS (1)
  1. OLANZAPINE 40MG [Suspect]
     Active Substance: OLANZAPINE

REACTIONS (3)
  - Pyrexia [None]
  - Gram stain positive [None]
  - Chills [None]

NARRATIVE: CASE EVENT DATE: 20201204
